FAERS Safety Report 4708256-2 (Version None)
Quarter: 2005Q3

REPORT INFORMATION
  Report Type: 
  Country: None (occurrence: None)
  Receive Date: 20050707
  Receipt Date: 20050608
  Transmission Date: 20060218
  Serious: Yes (Disabling)
  Sender: FDA-Public Use
  Company Number: PHFR2005GB02076

PATIENT
  Age: 32 Year
  Sex: Male

DRUGS (3)
  1. TEGRETOL [Suspect]
     Indication: EPILEPSY
     Dosage: 400 MG, BID
     Route: 048
  2. PHENYTOIN [Concomitant]
     Dosage: 400MG/NOCTE
     Route: 065
  3. LAMOTRIGINE [Concomitant]
     Dosage: 100 MG, BID
     Dates: start: 20050214

REACTIONS (1)
  - SPERM COUNT DECREASED [None]
